FAERS Safety Report 6177108-6 (Version None)
Quarter: 2009Q2

REPORT INFORMATION
  Report Type: 
  Country: None (occurrence: None)
  Receive Date: 20090430
  Receipt Date: 20090430
  Transmission Date: 20091009
  Serious: Yes (Life-Threatening, Hospitalization)
  Sender: FDA-Public Use
  Company Number: None

PATIENT
  Age: 74 Year
  Sex: Male
  Weight: 85 kg

DRUGS (1)
  1. BCG [Suspect]
     Indication: BLADDER CANCER
     Dosage: 1 VIAL ONCE WEEKLY INTRAVESICAL
     Route: 043
     Dates: start: 20081201, end: 20090414

REACTIONS (9)
  - ACID FAST BACILLI INFECTION [None]
  - CHILLS [None]
  - DISSEMINATED TUBERCULOSIS [None]
  - GRANULOMATOUS LIVER DISEASE [None]
  - HAEMATURIA [None]
  - HEPATIC CYST [None]
  - LIVER FUNCTION TEST ABNORMAL [None]
  - PYREXIA [None]
  - SYSTEMIC INFLAMMATORY RESPONSE SYNDROME [None]
